FAERS Safety Report 16418302 (Version 2)
Quarter: 2019Q2

REPORT INFORMATION
  Report Type: Spontaneous
  Country: US (occurrence: US)
  Receive Date: 20190612
  Receipt Date: 20190621
  Transmission Date: 20190711
  Serious: Yes (Other)
  Sender: FDA-Public Use
  Company Number: US-ASTRAZENECA-2018SF21218

PATIENT
  Age: 680 Month
  Sex: Female
  Weight: 179.2 kg

DRUGS (76)
  1. NEXIUM [Suspect]
     Active Substance: ESOMEPRAZOLE MAGNESIUM
     Route: 048
     Dates: start: 20051102
  2. PRILOSEC [Suspect]
     Active Substance: OMEPRAZOLE MAGNESIUM
     Dosage: GENERIC
     Route: 048
     Dates: start: 20110610
  3. PREVACID [Suspect]
     Active Substance: LANSOPRAZOLE
     Route: 065
     Dates: start: 199901, end: 201712
  4. ENALAPRIL [Concomitant]
     Active Substance: ENALAPRIL
  5. FENOPROFEN. [Concomitant]
     Active Substance: FENOPROFEN
  6. METFORMIN [Concomitant]
     Active Substance: METFORMIN HYDROCHLORIDE
  7. BENZONATATE. [Concomitant]
     Active Substance: BENZONATATE
  8. DIFLUCAN [Concomitant]
     Active Substance: FLUCONAZOLE
  9. GEMFIBROZIL. [Concomitant]
     Active Substance: GEMFIBROZIL
  10. NEXIUM [Suspect]
     Active Substance: ESOMEPRAZOLE MAGNESIUM
     Route: 048
     Dates: start: 199901, end: 201712
  11. NEXIUM [Suspect]
     Active Substance: ESOMEPRAZOLE MAGNESIUM
     Dosage: GENERIC
     Route: 065
  12. PRILOSEC [Suspect]
     Active Substance: OMEPRAZOLE MAGNESIUM
     Route: 048
     Dates: start: 199901, end: 201712
  13. PRILOSEC [Suspect]
     Active Substance: OMEPRAZOLE MAGNESIUM
     Dosage: GENERIC
     Route: 048
     Dates: start: 20120105
  14. PREVACID [Suspect]
     Active Substance: LANSOPRAZOLE
     Route: 065
     Dates: start: 20060921, end: 20100903
  15. PREVACID [Suspect]
     Active Substance: LANSOPRAZOLE
     Route: 065
     Dates: start: 20081230
  16. PREVACID [Suspect]
     Active Substance: LANSOPRAZOLE
     Route: 065
     Dates: start: 20090203
  17. ALBUTEROL. [Concomitant]
     Active Substance: ALBUTEROL
  18. ATENOLOL. [Concomitant]
     Active Substance: ATENOLOL
  19. ACETASOL [Concomitant]
     Active Substance: ACETIC ACID
  20. TRIMOX [Concomitant]
     Active Substance: AMOXICILLIN
  21. IBUPROFEN. [Concomitant]
     Active Substance: IBUPROFEN
  22. PRAZOSIN. [Concomitant]
     Active Substance: PRAZOSIN
  23. OXYCODONE [Concomitant]
     Active Substance: OXYCODONE
  24. VASOTEC [Concomitant]
     Active Substance: ENALAPRIL MALEATE
  25. TIZANIDINE. [Concomitant]
     Active Substance: TIZANIDINE
  26. SEPTRA [Concomitant]
     Active Substance: SULFAMETHOXAZOLE\TRIMETHOPRIM
  27. PRILOSEC [Suspect]
     Active Substance: OMEPRAZOLE MAGNESIUM
     Dosage: GENERIC
     Route: 048
     Dates: start: 20111031
  28. NORVASC [Concomitant]
     Active Substance: AMLODIPINE BESYLATE
  29. AVELOX [Concomitant]
     Active Substance: MOXIFLOXACIN HYDROCHLORIDE
  30. LOVASTATIN. [Concomitant]
     Active Substance: LOVASTATIN
  31. GEMFIBROZIL. [Concomitant]
     Active Substance: GEMFIBROZIL
  32. DOXYCYCLINE HYDROCHLORIDE [Concomitant]
     Active Substance: DOXYCYCLINE HYDROCHLORIDE
  33. VITAMIN D [Concomitant]
     Active Substance: VITAMIN D NOS
  34. MINIPRESS [Concomitant]
     Active Substance: PRAZOSIN HYDROCHLORIDE
  35. PRAZOSIN. [Concomitant]
     Active Substance: PRAZOSIN
  36. ZITHROMAX [Concomitant]
     Active Substance: AZITHROMYCIN DIHYDRATE
  37. NEXIUM [Suspect]
     Active Substance: ESOMEPRAZOLE MAGNESIUM
     Route: 048
     Dates: start: 20041018
  38. FUROSEMIDE. [Concomitant]
     Active Substance: FUROSEMIDE
  39. POTASSIUM CHLORIDE. [Concomitant]
     Active Substance: POTASSIUM CHLORIDE
  40. VENTOLIN [Concomitant]
     Active Substance: ALBUTEROL SULFATE
  41. NEXIUM [Suspect]
     Active Substance: ESOMEPRAZOLE MAGNESIUM
     Route: 048
     Dates: start: 20120504
  42. FLUOXETINE [Concomitant]
     Active Substance: FLUOXETINE HYDROCHLORIDE
  43. KLOR-CON [Concomitant]
     Active Substance: POTASSIUM CHLORIDE
  44. PREMARIN [Concomitant]
     Active Substance: ESTROGENS, CONJUGATED
  45. CARISOPRODOL. [Concomitant]
     Active Substance: CARISOPRODOL
  46. PREMARIN [Concomitant]
     Active Substance: ESTROGENS, CONJUGATED
  47. CEPHALEXIN. [Concomitant]
     Active Substance: CEPHALEXIN
  48. LOPID [Concomitant]
     Active Substance: GEMFIBROZIL
  49. NEXIUM [Suspect]
     Active Substance: ESOMEPRAZOLE MAGNESIUM
     Route: 048
  50. PREVACID [Suspect]
     Active Substance: LANSOPRAZOLE
     Route: 065
     Dates: start: 20080307
  51. AMITRIPTYLINE [Concomitant]
     Active Substance: AMITRIPTYLINE
  52. ASPIRIN. [Concomitant]
     Active Substance: ASPIRIN
  53. FLUOXETINE [Concomitant]
     Active Substance: FLUOXETINE HYDROCHLORIDE
  54. CRESTOR [Concomitant]
     Active Substance: ROSUVASTATIN CALCIUM
  55. FENOPROFEN. [Concomitant]
     Active Substance: FENOPROFEN
  56. PROAIR HFA [Concomitant]
     Active Substance: ALBUTEROL SULFATE
  57. CIPROFLOXACIN. [Concomitant]
     Active Substance: CIPROFLOXACIN
  58. DICLOFENAC SODIUM. [Concomitant]
     Active Substance: DICLOFENAC SODIUM
  59. NEXIUM [Suspect]
     Active Substance: ESOMEPRAZOLE MAGNESIUM
     Route: 048
     Dates: start: 20031010
  60. NEXIUM [Suspect]
     Active Substance: ESOMEPRAZOLE MAGNESIUM
     Route: 048
     Dates: start: 20030924
  61. NEXIUM [Suspect]
     Active Substance: ESOMEPRAZOLE MAGNESIUM
     Route: 048
     Dates: start: 20130604
  62. PRILOSEC [Suspect]
     Active Substance: OMEPRAZOLE MAGNESIUM
     Route: 048
     Dates: start: 19990101, end: 20041231
  63. ERYTHROCIN [Concomitant]
     Active Substance: ERYTHROMYCIN LACTOBIONATE
  64. FENOPROFEN. [Concomitant]
     Active Substance: FENOPROFEN
  65. SAVELLA [Concomitant]
     Active Substance: MILNACIPRAN HYDROCHLORIDE
  66. LOVASTATIN. [Concomitant]
     Active Substance: LOVASTATIN
  67. TIZANIDINE. [Concomitant]
     Active Substance: TIZANIDINE
  68. OXYCODONE HYDROCHLORIDE. [Concomitant]
     Active Substance: OXYCODONE HYDROCHLORIDE
  69. BACTRIM DS [Concomitant]
     Active Substance: SULFAMETHOXAZOLE\TRIMETHOPRIM
  70. NEXIUM [Suspect]
     Active Substance: ESOMEPRAZOLE MAGNESIUM
     Route: 048
     Dates: start: 20021213
  71. NEXIUM [Suspect]
     Active Substance: ESOMEPRAZOLE MAGNESIUM
     Route: 048
     Dates: start: 20021115, end: 20171208
  72. NIFEDIPIN [Concomitant]
     Active Substance: NIFEDIPINE
  73. AZITHROMYCIN ANHYDROUS. [Concomitant]
     Active Substance: AZITHROMYCIN ANHYDROUS
  74. LASIX [Concomitant]
     Active Substance: FUROSEMIDE
  75. PERIACTIN [Concomitant]
     Active Substance: CYPROHEPTADINE HYDROCHLORIDE
  76. PRAZOSIN. [Concomitant]
     Active Substance: PRAZOSIN

REACTIONS (6)
  - Chronic kidney disease [Unknown]
  - Dyspepsia [Unknown]
  - Renal injury [Unknown]
  - Acute kidney injury [Unknown]
  - Tubulointerstitial nephritis [Unknown]
  - End stage renal disease [Unknown]

NARRATIVE: CASE EVENT DATE: 201506
